FAERS Safety Report 23244872 (Version 1)
Quarter: 2023Q4

REPORT INFORMATION
  Report Type: Spontaneous
  Country: None (occurrence: US)
  Receive Date: 20231130
  Receipt Date: 20231130
  Transmission Date: 20240109
  Serious: No
  Sender: FDA-Public Use
  Company Number: US-STI Pharma LLC-2148826

PATIENT
  Age: 23 Year
  Sex: Female

DRUGS (7)
  1. ETHAMBUTOL HYDROCHLORIDE [Suspect]
     Active Substance: ETHAMBUTOL HYDROCHLORIDE
  2. RIFAMPIN [Concomitant]
     Active Substance: RIFAMPIN
  3. AZITHROMYCIN [Concomitant]
     Active Substance: AZITHROMYCIN
  4. Amikacin IV [Concomitant]
     Dates: start: 202204
  5. ARIKAYCE [Concomitant]
     Active Substance: AMIKACIN
  6. LINEZOLID [Concomitant]
     Active Substance: LINEZOLID
  7. CLOFAZIMINE [Concomitant]
     Active Substance: CLOFAZIMINE

REACTIONS (3)
  - Drug intolerance [Unknown]
  - Computerised tomogram thorax [Unknown]
  - Sputum culture positive [Unknown]
